FAERS Safety Report 14918331 (Version 1)
Quarter: 2018Q2

REPORT INFORMATION
  Report Type: Spontaneous
  Country: GR (occurrence: GR)
  Receive Date: 20180521
  Receipt Date: 20180521
  Transmission Date: 20180711
  Serious: Yes (Death, Other)
  Sender: FDA-Public Use
  Company Number: GR-EDENBRIDGE PHARMACEUTICALS, LLC-GR-2018EDE000149

PATIENT
  Age: 82 Year
  Sex: Male

DRUGS (1)
  1. PREDNISOLONE SODIUM PHOSPHATE. [Suspect]
     Active Substance: PREDNISOLONE SODIUM PHOSPHATE
     Indication: PRODUCT USED FOR UNKNOWN INDICATION
     Dosage: 1 MG/KG, QD
     Route: 065

REACTIONS (2)
  - Pneumonia [Fatal]
  - Pseudomonas infection [Fatal]
